FAERS Safety Report 8284807-9 (Version None)
Quarter: 2012Q2

REPORT INFORMATION
  Report Type: 
  Country: None (occurrence: None)
  Receive Date: 20120413
  Receipt Date: 20110325
  Transmission Date: 20120825
  Serious: No
  Sender: FDA-Public Use
  Company Number: US-ASTRAZENECA-2010SE11099

PATIENT
  Age: 59 Year
  Sex: Female

DRUGS (1)
  1. NEXIUM [Suspect]
     Route: 048

REACTIONS (9)
  - INFECTION [None]
  - UPPER RESPIRATORY TRACT INFECTION [None]
  - ORAL DISCOMFORT [None]
  - INCORRECT DOSE ADMINISTERED [None]
  - PRODUCTIVE COUGH [None]
  - DYSGEUSIA [None]
  - MALAISE [None]
  - DRUG DOSE OMISSION [None]
  - GASTROOESOPHAGEAL REFLUX DISEASE [None]
